FAERS Safety Report 7571339-6 (Version None)
Quarter: 2011Q2

REPORT INFORMATION
  Report Type: 
  Country: None (occurrence: None)
  Receive Date: 20110624
  Receipt Date: 20110614
  Transmission Date: 20111010
  Serious: Yes (Hospitalization)
  Sender: FDA-Public Use
  Company Number: B0726119A

PATIENT
  Sex: Female
  Weight: 112 kg

DRUGS (1)
  1. ARIXTRA [Suspect]
     Indication: THROMBOSIS PROPHYLAXIS
     Dosage: 2.5MG PER DAY
     Route: 058
     Dates: start: 20100209, end: 20100210

REACTIONS (2)
  - INTESTINAL OBSTRUCTION [None]
  - INCISION SITE HAEMATOMA [None]
